FAERS Safety Report 9251901 (Version 1)
Quarter: 2013Q1

REPORT INFORMATION
  Report Type: Spontaneous
  Country: US (occurrence: None)
  Receive Date: 20130305
  Receipt Date: 20130305
  Transmission Date: 20140127
  Serious: Yes (Other)
  Sender: FDA-Public Use
  Company Number: 163-21880-12091062

PATIENT
  Age: 79 Year
  Sex: Male
  Weight: 82.56 kg

DRUGS (8)
  1. REVLIMID [Suspect]
     Indication: MYELODYSPLASTIC SYNDROME
     Dosage: 07/03/2012 - UNKNOWN, CAPSULE, 10 MG, 21 IN 21 D, PO
  2. ARANESP (DARBEPOETIN ALFA) [Concomitant]
  3. LOVAZA (OMEGA-3 MARINE TRIGLYCERIDES) [Concomitant]
  4. VITAMINS [Concomitant]
  5. PRENATAL (PRENATAL) [Concomitant]
  6. VITAMIN D (ERGOCALCIFEROL) [Concomitant]
  7. ZETIA (EZETIMIBE) [Concomitant]
  8. WHOLE BLOOD [Concomitant]

REACTIONS (5)
  - Haematocrit decreased [None]
  - White blood cell count decreased [None]
  - Platelet count decreased [None]
  - Somnolence [None]
  - Rash [None]
